FAERS Safety Report 5812980-8 (Version None)
Quarter: 2008Q3

REPORT INFORMATION
  Report Type: 
  Country: None (occurrence: None)
  Receive Date: 20080717
  Receipt Date: 20070913
  Transmission Date: 20090109
  Serious: No
  Sender: FDA-Public Use
  Company Number: A0681395A

PATIENT
  Age: 31 Year
  Sex: Male

DRUGS (1)
  1. NICORETTE [Suspect]
     Dates: start: 20070910, end: 20070910

REACTIONS (5)
  - EATING DISORDER [None]
  - GLOSSODYNIA [None]
  - MOUTH INJURY [None]
  - ORAL DISCOMFORT [None]
  - ORAL PAIN [None]
